FAERS Safety Report 5031397-X (Version None)
Quarter: 2006Q2

REPORT INFORMATION
  Report Type: 
  Country: None (occurrence: None)
  Receive Date: 20060621
  Receipt Date: 20060614
  Transmission Date: 20061013
  Serious: Yes (Death)
  Sender: FDA-Public Use
  Company Number: GB-MERCK-0606GBR00051

PATIENT
  Sex: Male

DRUGS (12)
  1. COZAAR [Suspect]
     Route: 048
  2. CITALOPRAM [Suspect]
     Route: 065
  3. NYSTATIN [Suspect]
     Route: 065
  4. MOMETASONE FUROATE [Suspect]
     Route: 065
  5. OXYGEN [Suspect]
     Route: 065
  6. PHOLCODINE [Suspect]
     Route: 065
  7. ALBUTEROL SULFATE AND IPRATROPIUM BROMIDE [Suspect]
     Route: 065
  8. ALBUTEROL [Suspect]
     Route: 065
  9. FLUTICASONE PROPIONATE AND SALMETEROL XINAFOATE [Suspect]
     Route: 065
  10. TIOTROPIUM BROMIDE [Suspect]
     Route: 065
  11. LATANOPROST [Suspect]
     Route: 065
  12. ZOPICLONE [Suspect]
     Route: 065

REACTIONS (1)
  - CHRONIC OBSTRUCTIVE PULMONARY DISEASE [None]
